FAERS Safety Report 6964734-7 (Version None)
Quarter: 2010Q3

REPORT INFORMATION
  Report Type: 
  Country: None (occurrence: None)
  Receive Date: 20100903
  Receipt Date: 20100824
  Transmission Date: 20110219
  Serious: Yes (Hospitalization)
  Sender: FDA-Public Use
  Company Number: SE-JNJFOC-20100805875

PATIENT
  Age: 66 Year
  Sex: Male

DRUGS (10)
  1. REMICADE [Suspect]
     Indication: PROCTOCOLITIS
     Route: 042
  2. REMICADE [Suspect]
     Dosage: 3 INFUSIONS
     Route: 042
  3. REMICADE [Suspect]
     Indication: COLITIS ULCERATIVE
     Route: 042
  4. REMICADE [Suspect]
     Dosage: 3 INFUSIONS
     Route: 042
  5. NOVORAPID [Concomitant]
  6. HUMAN INSULIN [Concomitant]
  7. COLAZID [Concomitant]
  8. ENALAPRIL [Concomitant]
  9. TRAMADOL HCL [Concomitant]
  10. ACETAMINOPHEN [Concomitant]

REACTIONS (5)
  - ABASIA [None]
  - ARTHRALGIA [None]
  - ARTHRITIS [None]
  - C-REACTIVE PROTEIN INCREASED [None]
  - JOINT EFFUSION [None]
